FAERS Safety Report 14911503 (Version 3)
Quarter: 2019Q2

REPORT INFORMATION
  Report Type: Report from Study
  Country: US (occurrence: US)
  Receive Date: 20180518
  Receipt Date: 20190423
  Transmission Date: 20190711
  Serious: Yes (Other)
  Sender: FDA-Public Use
  Company Number: PHEH2018US019215

PATIENT
  Age: 34 Year
  Sex: Male

DRUGS (1)
  1. GILENYA [Suspect]
     Active Substance: FINGOLIMOD HYDROCHLORIDE
     Indication: PRODUCT USED FOR UNKNOWN INDICATION
     Dosage: 0.5 MG, QD
     Route: 048
     Dates: start: 20171106

REACTIONS (10)
  - Constipation [Unknown]
  - Anger [Unknown]
  - Talipes [Recovered/Resolved]
  - Pain in extremity [Unknown]
  - Headache [Unknown]
  - Depression [Unknown]
  - Motion sickness [Recovered/Resolved]
  - Dizziness [Recovered/Resolved]
  - Flatulence [Unknown]
  - Vitamin D decreased [Unknown]

NARRATIVE: CASE EVENT DATE: 20190323
